FAERS Safety Report 14152715 (Version 1)
Quarter: 2017Q4

REPORT INFORMATION
  Report Type: Report from Study
  Country: CA (occurrence: CA)
  Receive Date: 20171102
  Receipt Date: 20171102
  Transmission Date: 20180321
  Serious: Yes (Hospitalization)
  Sender: FDA-Public Use
  Company Number: PHHO2014CA015440

PATIENT
  Age: 66 Year
  Sex: Male
  Weight: 80.9 kg

DRUGS (1)
  1. ACZ885 [Suspect]
     Active Substance: CANAKINUMAB
     Indication: CARDIOVASCULAR EVENT PROPHYLAXIS
     Dosage: 300 MG, QUARTERLY
     Route: 058
     Dates: start: 20130923

REACTIONS (5)
  - Staphylococcal bacteraemia [Recovered/Resolved]
  - Parotitis [Recovered/Resolved]
  - Haematoma [Recovered/Resolved]
  - Lymphatic fistula [Recovered/Resolved]
  - Cellulitis [Recovered/Resolved]

NARRATIVE: CASE EVENT DATE: 20141006
